FAERS Safety Report 20976314 (Version 3)
Quarter: 2022Q3

REPORT INFORMATION
  Report Type: Spontaneous
  Country: US (occurrence: US)
  Receive Date: 20220617
  Receipt Date: 20220926
  Transmission Date: 20221027
  Serious: Yes (Other)
  Sender: FDA-Public Use
  Company Number: US-PFIZER INC-PV202200002258

PATIENT
  Age: 57 Year
  Sex: Female

DRUGS (2)
  1. XELJANZ XR [Suspect]
     Active Substance: TOFACITINIB CITRATE
     Indication: Rheumatoid arthritis
     Dosage: 11 MG, DAILY
     Route: 048
     Dates: start: 20220606
  2. SHINGRIX [Concomitant]
     Active Substance: RECOMBINANT VARICELLA ZOSTER VIRUS (VZV) GLYCOPROTEIN E
     Indication: Immunisation
     Dosage: DOSE NUMBER UNKNOWN (BOOSTER), SINGLE
     Dates: start: 20220611, end: 20220611

REACTIONS (13)
  - Sjogren^s syndrome [Unknown]
  - Arthralgia [Unknown]
  - Dry eye [Unknown]
  - Dry mouth [Unknown]
  - Fungal infection [Unknown]
  - Infection [Unknown]
  - Stomatitis [Unknown]
  - Pharyngitis [Unknown]
  - Urinary tract infection [Unknown]
  - Aphasia [Unknown]
  - Malaise [Unknown]
  - Product use in unapproved therapeutic environment [Unknown]
  - Product dose omission in error [Unknown]

NARRATIVE: CASE EVENT DATE: 20220601
